FAERS Safety Report 20792385 (Version 1)
Quarter: 2022Q2

REPORT INFORMATION
  Report Type: Spontaneous
  Country: CA (occurrence: CA)
  Receive Date: 20220505
  Receipt Date: 20220505
  Transmission Date: 20220720
  Serious: Yes (Other)
  Sender: FDA-Public Use
  Company Number: CA-JNJFOC-20220458224

PATIENT
  Age: 27 Year
  Sex: Female
  Weight: 68 kg

DRUGS (2)
  1. REMICADE [Suspect]
     Active Substance: INFLIXIMAB
     Indication: Crohn^s disease
     Route: 042
  2. PANTOPRAZOLE SODIUM [Concomitant]
     Active Substance: PANTOPRAZOLE SODIUM

REACTIONS (9)
  - Shock [Unknown]
  - Concussion [Unknown]
  - Road traffic accident [Unknown]
  - Weight increased [Unknown]
  - Contusion [Unknown]
  - Crohn^s disease [Unknown]
  - Abdominal pain [Unknown]
  - Diarrhoea [Unknown]
  - Incorrect dose administered [Unknown]
